FAERS Safety Report 4713165-9 (Version None)
Quarter: 2005Q3

REPORT INFORMATION
  Report Type: 
  Country: None (occurrence: None)
  Receive Date: 20050701
  Receipt Date: 20040701
  Transmission Date: 20060218
  Serious: Yes (Other)
  Sender: FDA-Public Use
  Company Number: 2004033534

PATIENT
  Sex: Female
  Weight: 68.0396 kg

DRUGS (8)
  1. ZOLOFT [Suspect]
     Indication: ANXIETY
     Route: 065
     Dates: start: 19910101, end: 20010801
  2. ZOLOFT [Suspect]
     Indication: DEPRESSION
     Route: 065
     Dates: start: 19910101, end: 20010801
  3. PAROXETINE HCL [Suspect]
     Indication: ANXIETY
     Route: 065
     Dates: start: 20010801
  4. PAROXETINE HCL [Suspect]
     Indication: DEPRESSION
     Route: 065
     Dates: start: 20010801
  5. ESCITALOPRAM OXALATE [Suspect]
     Indication: ILL-DEFINED DISORDER
     Route: 065
     Dates: start: 20040413
  6. ORAL CONTRACEPTIVE NOS (ORAL CONTRACEPTIVE NOS) [Concomitant]
  7. ALLERGY MEDICATION (ALLERGY MEDICATION) [Concomitant]
  8. VITAMINS (VITAMINS) [Concomitant]

REACTIONS (9)
  - AFFECTIVE DISORDER [None]
  - ANXIETY [None]
  - DRUG EXPOSURE DURING PREGNANCY [None]
  - DRUG INEFFECTIVE [None]
  - HAEMATOMA [None]
  - HAEMORRHAGE [None]
  - INSOMNIA [None]
  - PANIC ATTACK [None]
  - WEIGHT INCREASED [None]
